FAERS Safety Report 4918100-6 (Version None)
Quarter: 2006Q1

REPORT INFORMATION
  Report Type: 
  Country: None (occurrence: None)
  Receive Date: 20060221
  Receipt Date: 20051025
  Transmission Date: 20060701
  Serious: Yes (Hospitalization)
  Sender: FDA-Public Use
  Company Number: US-MERCK-0510USA09015

PATIENT
  Age: 78 Year
  Sex: Female
  Weight: 72 kg

DRUGS (5)
  1. VIOXX [Suspect]
     Indication: FOOT OPERATION
     Route: 048
     Dates: start: 20000901, end: 20010110
  2. VIOXX [Suspect]
     Route: 048
     Dates: start: 20011101, end: 20011221
  3. VIOXX [Suspect]
     Indication: BACK PAIN
     Route: 048
     Dates: start: 20000901, end: 20010110
  4. VIOXX [Suspect]
     Route: 048
     Dates: start: 20011101, end: 20011221
  5. TYLENOL [Concomitant]
     Route: 065

REACTIONS (6)
  - BLOOD CHOLESTEROL INCREASED [None]
  - CYST [None]
  - HERPES ZOSTER [None]
  - MUSCULOSKELETAL CHEST PAIN [None]
  - MYOCARDIAL INFARCTION [None]
  - SPINAL DISORDER [None]
